FAERS Safety Report 20609542 (Version 3)
Quarter: 2022Q3

REPORT INFORMATION
  Report Type: Report from Study
  Country: US (occurrence: None)
  Receive Date: 20220318
  Receipt Date: 20220912
  Transmission Date: 20221027
  Serious: Yes (Death, Life-Threatening, Hospitalization)
  Sender: FDA-Public Use
  Company Number: US-ROCHE-3052029

PATIENT
  Age: 76 Year
  Sex: Male
  Weight: 72.3 kg

DRUGS (5)
  1. ATEZOLIZUMAB [Suspect]
     Active Substance: ATEZOLIZUMAB
     Indication: Bladder cancer
     Dosage: LAST DOSE ON 06/DEC/2021
     Route: 041
     Dates: start: 20211206
  2. FLUOROURACIL [Suspect]
     Active Substance: FLUOROURACIL
     Indication: Bladder cancer
     Dosage: GIVEN ON SAME DAYS AS DOSES 1-5 AND 16-20 OF RT?LAST DOSE ON 06/DEC/20221 4750 MG
     Route: 042
     Dates: start: 20211206
  3. MITOMYCIN C [Suspect]
     Active Substance: MITOMYCIN
     Indication: Bladder cancer
     Dosage: GIVEN ON SAME DAY AS DOSE 1 OF RT?LAST DOSE ON 15-NOV-2021, 22.8 MG
     Route: 042
     Dates: start: 20211115, end: 20211115
  4. GEMCITABINE HYDROCHLORIDE [Suspect]
     Active Substance: GEMCITABINE HYDROCHLORIDE
     Indication: Bladder cancer
     Route: 042
     Dates: start: 20211206
  5. CISPLATIN [Suspect]
     Active Substance: CISPLATIN
     Indication: Bladder cancer
     Route: 042
     Dates: start: 20211206

REACTIONS (5)
  - Hypoxia [Fatal]
  - Myocarditis [Unknown]
  - Pneumonitis [Recovered/Resolved]
  - Pneumonia [Unknown]
  - Myocarditis [Fatal]

NARRATIVE: CASE EVENT DATE: 20211227
